FAERS Safety Report 6474007-7 (Version None)
Quarter: 2009Q4

REPORT INFORMATION
  Report Type: 
  Country: None (occurrence: None)
  Receive Date: 20091204
  Receipt Date: 20091124
  Transmission Date: 20100525
  Serious: Yes (Hospitalization)
  Sender: FDA-Public Use
  Company Number: IT-JNJFOC-20091107350

PATIENT
  Age: 51 Year
  Sex: Male

DRUGS (5)
  1. REMICADE [Suspect]
     Indication: PSORIATIC ARTHROPATHY
     Route: 042
  2. METHOTREXATE [Concomitant]
     Route: 030
  3. HUMALOG [Concomitant]
     Indication: DIABETES MELLITUS
     Route: 058
  4. LANTUS [Concomitant]
     Indication: DIABETES MELLITUS
     Route: 058
  5. PREFOLIC (CALCIUM LEVOMEFOLATE) [Concomitant]
     Route: 048

REACTIONS (1)
  - PNEUMONIA LEGIONELLA [None]
